FAERS Safety Report 18621905 (Version 1)
Quarter: 2020Q4

REPORT INFORMATION
  Report Type: Spontaneous
  Country: US (occurrence: US)
  Receive Date: 20201215
  Receipt Date: 20201215
  Transmission Date: 20210114
  Serious: No
  Sender: FDA-Public Use
  Company Number: US-GLENMARK PHARMACEUTICALS-2020GMK048030

PATIENT

DRUGS (2)
  1. LEXAPRO [Concomitant]
     Active Substance: ESCITALOPRAM OXALATE
     Indication: ANXIETY
     Dosage: UNK (A YEAR BEFORE THIS REPORT)
     Route: 048
     Dates: start: 2019
  2. OMEPRAZOLE. [Suspect]
     Active Substance: OMEPRAZOLE
     Indication: GASTROOESOPHAGEAL REFLUX DISEASE
     Dosage: 40 MILLIGRAM, OD
     Route: 048
     Dates: start: 202001

REACTIONS (2)
  - Alopecia [Not Recovered/Not Resolved]
  - Product substitution issue [Unknown]

NARRATIVE: CASE EVENT DATE: 202002
